FAERS Safety Report 7929973-7 (Version None)
Quarter: 2011Q4

REPORT INFORMATION
  Report Type: 
  Country: None (occurrence: None)
  Receive Date: 20111117
  Receipt Date: 20111107
  Transmission Date: 20120403
  Serious: Yes (Death, Hospitalization)
  Sender: FDA-Public Use
  Company Number: 2011P1010182

PATIENT
  Age: 66 Year
  Sex: Female

DRUGS (3)
  1. AZATHIOPRINE [Concomitant]
  2. HYDROXYCHLOROQUINE SULFATE [Suspect]
     Indication: SYSTEMIC LUPUS ERYTHEMATOSUS
     Dosage: 400 MG;QD
  3. PREDNISONE [Concomitant]

REACTIONS (5)
  - EJECTION FRACTION DECREASED [None]
  - TOXICITY TO VARIOUS AGENTS [None]
  - CARDIAC FAILURE [None]
  - MULTI-ORGAN FAILURE [None]
  - CORONARY ARTERY DISEASE [None]
